FAERS Safety Report 24213898 (Version 1)
Quarter: 2024Q3

REPORT INFORMATION
  Report Type: Spontaneous
  Country: US (occurrence: US)
  Receive Date: 20240815
  Receipt Date: 20240815
  Transmission Date: 20241016
  Serious: Yes (Hospitalization)
  Sender: BAUSCH AND LOMB
  Company Number: US-BAUSCH-BL-2024-012300

PATIENT
  Age: 52 Year
  Sex: Female
  Weight: 69.2 kg

DRUGS (11)
  1. DESMOPRESSIN ACETATE [Suspect]
     Active Substance: DESMOPRESSIN ACETATE
     Indication: Hypopituitarism
     Route: 045
     Dates: start: 20090731, end: 20100324
  2. DESMOPRESSIN ACETATE [Suspect]
     Active Substance: DESMOPRESSIN ACETATE
     Route: 045
     Dates: start: 20100324
  3. TUCATINIB [Suspect]
     Active Substance: TUCATINIB
     Indication: Breast cancer metastatic
     Route: 065
     Dates: start: 20100208, end: 20100324
  4. TUCATINIB [Suspect]
     Active Substance: TUCATINIB
     Route: 065
     Dates: start: 20100329
  5. HYDROCORTISONE [Concomitant]
     Active Substance: HYDROCORTISONE\HYDROCORTISONE ACETATE
     Indication: Hypopituitarism
     Dates: start: 20090731
  6. LEVOTHYROXINE [Concomitant]
     Active Substance: LEVOTHYROXINE\LEVOTHYROXINE SODIUM
     Indication: Hypopituitarism
     Dates: start: 20090731
  7. TESTOSTERONE [Concomitant]
     Active Substance: TESTOSTERONE
     Indication: Libido increased
     Route: 061
     Dates: start: 20060821
  8. MAGNESIUM OXIDE [Concomitant]
     Active Substance: MAGNESIUM OXIDE
     Indication: Muscle spasms
     Dates: start: 20091209
  9. SOLU-CORTEF [Concomitant]
     Active Substance: HYDROCORTISONE SODIUM SUCCINATE
     Indication: Adrenal insufficiency
     Route: 030
     Dates: start: 20090803
  10. CALCIUM [Concomitant]
     Active Substance: CALCIUM
     Indication: Muscle spasms
     Route: 048
     Dates: start: 20101209
  11. ESTRADIOL [Concomitant]
     Active Substance: ESTRADIOL
     Indication: Vulvovaginal dryness
     Route: 061
     Dates: start: 2005

REACTIONS (1)
  - Diabetes insipidus [Recovered/Resolved]

NARRATIVE: CASE EVENT DATE: 20100325
